FAERS Safety Report 24039642 (Version 1)
Quarter: 2024Q3

REPORT INFORMATION
  Report Type: Spontaneous
  Country: US (occurrence: US)
  Receive Date: 20240702
  Receipt Date: 20240702
  Transmission Date: 20241017
  Serious: No
  Sender: LUPIN
  Company Number: US-LUPIN PHARMACEUTICALS INC.-2024-05615

PATIENT

DRUGS (1)
  1. FAMOTIDINE [Suspect]
     Active Substance: FAMOTIDINE
     Indication: Gastrointestinal disorder
     Dosage: 1 MILLILITER, QD (BY G-TUBE)
     Route: 048

REACTIONS (2)
  - Wrong technique in product usage process [Unknown]
  - No adverse event [Unknown]
